FAERS Safety Report 20460004 (Version 3)
Quarter: 2022Q3

REPORT INFORMATION
  Report Type: Other
  Country: US (occurrence: None)
  Receive Date: 20220211
  Receipt Date: 20220807
  Transmission Date: 20221027
  Serious: Yes (Other)
  Sender: FDA-Public Use
  Company Number: US-ROCHE-3018234

PATIENT
  Age: 47 Year
  Sex: Female
  Weight: 80.358 kg

DRUGS (10)
  1. OCREVUS [Suspect]
     Active Substance: OCRELIZUMAB
     Indication: Secondary progressive multiple sclerosis
     Dosage: (STRENGTH: 30 MG/ML), 600 MG IV EVERY 6 MONTHS, DATE OF TREATMENT: 15/JUL/2020, 21/JUL/2021, /AUG/20
     Route: 042
     Dates: start: 2019
  2. LEVAQUIN [Concomitant]
     Active Substance: LEVOFLOXACIN
  3. BACLOFEN [Concomitant]
     Active Substance: BACLOFEN
  4. VALTREX [Concomitant]
     Active Substance: VALACYCLOVIR HYDROCHLORIDE
  5. VIMPAT [Concomitant]
     Active Substance: LACOSAMIDE
  6. MOBIC [Concomitant]
     Active Substance: MELOXICAM
  7. KEPPRA [Concomitant]
     Active Substance: LEVETIRACETAM
  8. CYMBALTA [Concomitant]
     Active Substance: DULOXETINE HYDROCHLORIDE
  9. VITAMIN D2 [Concomitant]
     Active Substance: ERGOCALCIFEROL
  10. SOLU-MEDROL [Concomitant]
     Active Substance: METHYLPREDNISOLONE SODIUM SUCCINATE

REACTIONS (1)
  - COVID-19 pneumonia [Recovering/Resolving]

NARRATIVE: CASE EVENT DATE: 20220118
